FAERS Safety Report 13722007 (Version 4)
Quarter: 2021Q4

REPORT INFORMATION
  Report Type: Spontaneous
  Country: US (occurrence: US)
  Receive Date: 20170706
  Receipt Date: 20211102
  Transmission Date: 20220303
  Serious: No
  Sender: FDA-Public Use
  Company Number: US-PFIZER INC-2017281268

PATIENT
  Age: 46 Year
  Sex: Male
  Weight: 83.91 kg

DRUGS (7)
  1. NORPACE [Suspect]
     Active Substance: DISOPYRAMIDE PHOSPHATE
     Indication: Hypertrophic cardiomyopathy
     Dosage: 1 DF, TWICE DAILY
     Route: 048
     Dates: start: 20010828
  2. NORPACE [Suspect]
     Active Substance: DISOPYRAMIDE PHOSPHATE
     Indication: Arrhythmia
     Dosage: 150 MG TWICE PER DAY (1 IN MORNING AND 1 AT NIGHT)
     Dates: start: 20170617
  3. NORPACE [Suspect]
     Active Substance: DISOPYRAMIDE PHOSPHATE
     Indication: Ventricular tachycardia
     Dosage: 100 MG, 3X/DAY (100 MG THREE TIMES A DAY)
     Dates: start: 20210701
  4. METOPROLOL TARTRATE [Concomitant]
     Active Substance: METOPROLOL TARTRATE
     Indication: Hypertension
     Dosage: 25 MG ONCE PER DAY
     Dates: start: 201609
  5. ASPIRIN [Concomitant]
     Active Substance: ASPIRIN
     Indication: Cardiac disorder
     Dosage: 81 MG, DAILY
     Dates: start: 20030107
  6. METOPROLOL [Concomitant]
     Active Substance: METOPROLOL
     Indication: Hypertrophic cardiomyopathy
     Dosage: 25 MG, ONCE A DAY
  7. AMOXICILLIN [Concomitant]
     Active Substance: AMOXICILLIN
     Indication: Subacute endocarditis
     Dosage: 2000 MG, (500MG- 4 TABLETS 1 HOUR PRIOR TO DENTAL PROCEDURE)
     Dates: start: 20080821

REACTIONS (8)
  - Headache [Recovered/Resolved]
  - Dizziness [Recovered/Resolved]
  - Blood pressure decreased [Recovered/Resolved]
  - Constipation [Not Recovered/Not Resolved]
  - Abdominal distension [Unknown]
  - Gout [Not Recovered/Not Resolved]
  - Pain in extremity [Unknown]
  - Fatigue [Unknown]

NARRATIVE: CASE EVENT DATE: 20170601
